FAERS Safety Report 7432590-9 (Version None)
Quarter: 2011Q2

REPORT INFORMATION
  Report Type: 
  Country: None (occurrence: None)
  Receive Date: 20110422
  Receipt Date: 20110412
  Transmission Date: 20111010
  Serious: No
  Sender: FDA-Public Use
  Company Number: US-B.I. PHARMACEUTICALS,INC./RIDGEFIELD-2011-BP-10642BP

PATIENT
  Sex: Female

DRUGS (7)
  1. SIMVASTATIN [Concomitant]
     Indication: BLOOD CHOLESTEROL INCREASED
     Dosage: 10 MG
     Route: 048
  2. PRADAXA [Suspect]
     Dosage: 300 MG
     Route: 048
     Dates: start: 20110410
  3. LOTREL [Concomitant]
     Indication: HYPERTENSION
     Route: 048
  4. MOBIC [Concomitant]
     Indication: ARTHRITIS
     Route: 048
  5. COUMADIN [Concomitant]
     Indication: THROMBOSIS
     Dates: end: 20110407
  6. ACEBUTOLOL [Concomitant]
     Indication: HYPERTENSION
     Dosage: 400 MG
     Route: 048
  7. COGENTIN [Concomitant]
     Route: 048

REACTIONS (4)
  - FALL [None]
  - HAEMORRHAGE [None]
  - MENTAL IMPAIRMENT [None]
  - SHOCK [None]
